FAERS Safety Report 7757147-1 (Version None)
Quarter: 2011Q3

REPORT INFORMATION
  Report Type: 
  Country: None (occurrence: None)
  Receive Date: 20110916
  Receipt Date: 20110901
  Transmission Date: 20111222
  Serious: Yes (Other)
  Sender: FDA-Public Use
  Company Number: IT-ARROW GEN-2011-14642

PATIENT
  Age: 32 Year
  Sex: Male

DRUGS (1)
  1. TOPIRAMATE [Suspect]
     Indication: EPILEPSY
     Dosage: DOSE WAS INCREASED BY 25 MG/WK UP TO 350 MG DAILY
     Route: 065

REACTIONS (1)
  - ERECTILE DYSFUNCTION [None]
